FAERS Safety Report 5853425-1 (Version None)
Quarter: 2008Q3

REPORT INFORMATION
  Report Type: 
  Country: None (occurrence: None)
  Receive Date: 20080821
  Receipt Date: 20080812
  Transmission Date: 20090109
  Serious: Yes (Other)
  Sender: FDA-Public Use
  Company Number: US-PFIZER INC-2008068616

PATIENT
  Age: 76 Year
  Sex: Male

DRUGS (1)
  1. SU-011,248 [Suspect]
     Indication: RENAL CANCER
     Dosage: DAILY DOSE:50MG

REACTIONS (3)
  - HAEMOGLOBIN DECREASED [None]
  - HYPERTHYROIDISM [None]
  - MYOCARDIAL INFARCTION [None]
